FAERS Safety Report 4871510-8 (Version None)
Quarter: 2005Q4

REPORT INFORMATION
  Report Type: 
  Country: None (occurrence: None)
  Receive Date: 20051229
  Receipt Date: 20051213
  Transmission Date: 20060501
  Serious: Yes (Other)
  Sender: FDA-Public Use
  Company Number: US_0506118179

PATIENT
  Age: 61 Year
  Sex: Male

DRUGS (7)
  1. HUMATROPE [Suspect]
     Indication: GROWTH HORMONE DEFICIENCY
     Dosage: 0.4 MG, DAILY (1/D), SUBCUTANEOUS
     Route: 058
     Dates: start: 19990801
  2. CORGARD [Concomitant]
  3. INDOMETHACIN [Concomitant]
  4. VIAGRA [Concomitant]
  5. LOZOL [Concomitant]
  6. AMOXICILLIN [Concomitant]
  7. TESTOSTERONE [Concomitant]

REACTIONS (1)
  - SQUAMOUS CELL CARCINOMA [None]
